FAERS Safety Report 5020464-2 (Version None)
Quarter: 2006Q2

REPORT INFORMATION
  Report Type: 
  Country: None (occurrence: None)
  Receive Date: 20060607
  Receipt Date: 20050506
  Transmission Date: 20061013
  Serious: Yes (Other)
  Sender: FDA-Public Use
  Company Number: US-JNJFOC-20050204573

PATIENT
  Sex: Male

DRUGS (6)
  1. RISPERDAL [Suspect]
     Indication: AFFECT LABILITY
     Route: 048
  2. RISPERDAL [Suspect]
     Indication: HALLUCINATION, AUDITORY
     Route: 048
  3. RISPERDAL [Suspect]
     Indication: POST-TRAUMATIC STRESS DISORDER
     Route: 048
  4. PAXIL [Concomitant]
     Indication: POST-TRAUMATIC STRESS DISORDER
  5. NORTRIPTYLINE HCL [Concomitant]
     Indication: POST-TRAUMATIC STRESS DISORDER
  6. WELLBUTRIN SR [Concomitant]
     Indication: POST-TRAUMATIC STRESS DISORDER

REACTIONS (2)
  - PLATELET COUNT DECREASED [None]
  - WHITE BLOOD CELL COUNT DECREASED [None]
